FAERS Safety Report 9032198 (Version 1)
Quarter: 2013Q1

REPORT INFORMATION
  Report Type: Spontaneous
  Country: US (occurrence: US)
  Receive Date: 20130122
  Receipt Date: 20130122
  Transmission Date: 20140127
  Serious: No
  Sender: FDA-Public Use
  Company Number: US-009507513-1301USA008618

PATIENT
  Sex: Male

DRUGS (7)
  1. INTEGRILIN [Suspect]
     Dosage: UNK
     Route: 042
     Dates: start: 20130116, end: 20130116
  2. INTEGRILIN [Suspect]
     Dosage: UNK
     Route: 042
     Dates: start: 20130116
  3. LOVENOX [Concomitant]
  4. ASPIRIN [Concomitant]
  5. ATORVASTATIN [Concomitant]
  6. METOPROLOL [Concomitant]
  7. RAMIPRIL [Concomitant]

REACTIONS (1)
  - Infusion site extravasation [Not Recovered/Not Resolved]
